FAERS Safety Report 10033216 (Version 1)
Quarter: 2014Q1

REPORT INFORMATION
  Report Type: Spontaneous
  Country: FR (occurrence: FR)
  Receive Date: 20140324
  Receipt Date: 20140324
  Transmission Date: 20141002
  Serious: Yes (Death, Other)
  Sender: FDA-Public Use
  Company Number: FR-TEVA-468794ISR

PATIENT
  Age: 65 Year
  Sex: Female

DRUGS (5)
  1. DOXORUBICINE TEVA [Suspect]
     Indication: NON-HODGKIN^S LYMPHOMA
     Dosage: 500 MG/M2 DAILY; FIRST COURSE OF R-CHOP PROTOCOL
     Route: 042
     Dates: start: 20100823, end: 20100823
  2. MABTHERA [Suspect]
     Indication: NON-HODGKIN^S LYMPHOMA
     Dosage: 375 MG/M2 DAILY; FIRST COURSE OF R-CHOP PROTOCOL
     Route: 042
     Dates: start: 20100823, end: 20100823
  3. VINCRISTINE HOSPIRA [Suspect]
     Indication: NON-HODGKIN^S LYMPHOMA
     Dosage: 1.4 MG/M2 DAILY; FIRST COURSE OF R-CHOP PROTOCOL
     Route: 042
     Dates: start: 20100823, end: 20100823
  4. METHYLPREDNISOLONE MYLAN [Suspect]
     Indication: NON-HODGKIN^S LYMPHOMA
     Dosage: 40 MG/M2 DAILY; FIRST COURSE OF R-CHOP PROTOCOL
     Route: 042
     Dates: start: 20100823, end: 20100823
  5. ENDOXAN [Concomitant]
     Indication: NON-HODGKIN^S LYMPHOMA
     Dosage: 750 MG/M2 DAILY; FIRST COURSE OF R-CHOP PROTOCOL
     Route: 042
     Dates: start: 20100823, end: 20100823

REACTIONS (2)
  - Respiratory distress [Fatal]
  - Atrial fibrillation [Unknown]
